FAERS Safety Report 20968007 (Version 1)
Quarter: 2022Q2

REPORT INFORMATION
  Report Type: Report from Study
  Country: GB (occurrence: GB)
  Receive Date: 20220616
  Receipt Date: 20220616
  Transmission Date: 20220720
  Serious: Yes (Hospitalization)
  Sender: FDA-Public Use
  Company Number: GB-NOVARTISPH-NVSC2021GB236999

PATIENT
  Sex: Male

DRUGS (1)
  1. HYRIMOZ [Suspect]
     Active Substance: ADALIMUMAB-ADAZ
     Indication: Crohn^s disease
     Dosage: 40 MG, Q2W (FORNIGHTLY) ((SANDOZ LTD) 2 PRE-FILLED DISPOSABLE INJECTION)
     Route: 058

REACTIONS (2)
  - Crohn^s disease [Unknown]
  - Abdominal discomfort [Not Recovered/Not Resolved]
